FAERS Safety Report 16046719 (Version 1)
Quarter: 2019Q1

REPORT INFORMATION
  Report Type: Other
  Country: US (occurrence: US)
  Receive Date: 20190307
  Receipt Date: 20190307
  Transmission Date: 20190418
  Serious: Yes (Disabling, Other)
  Sender: FDA-Public Use
  Company Number: US-ACORDA-ACO_157412_2019

PATIENT
  Sex: Female

DRUGS (1)
  1. AMPYRA [Suspect]
     Active Substance: DALFAMPRIDINE
     Indication: MULTIPLE SCLEROSIS
     Dosage: 10 MILLIGRAM, BID
     Route: 048
     Dates: start: 201901

REACTIONS (3)
  - Aphasia [Unknown]
  - Oral pain [Unknown]
  - Swollen tongue [Unknown]
